FAERS Safety Report 21497138 (Version 3)
Quarter: 2023Q1

REPORT INFORMATION
  Report Type: Report from Study
  Country: US (occurrence: US)
  Receive Date: 20221023
  Receipt Date: 20230119
  Transmission Date: 20230417
  Serious: Yes (Hospitalization, Other)
  Sender: FDA-Public Use
  Company Number: US-NOVARTISPH-NVSC2022US236773

PATIENT
  Age: 52 Year
  Sex: Male

DRUGS (1)
  1. KESIMPTA [Suspect]
     Active Substance: OFATUMUMAB
     Indication: Multiple sclerosis
     Dosage: 20 MG, Q2W
     Route: 058
     Dates: start: 20220212

REACTIONS (3)
  - Enteritis infectious [Unknown]
  - Crohn^s disease [Unknown]
  - Fall [Unknown]

NARRATIVE: CASE EVENT DATE: 20220905
